FAERS Safety Report 12129920 (Version 1)
Quarter: 2016Q1

REPORT INFORMATION
  Report Type: Spontaneous
  Country: US (occurrence: None)
  Receive Date: 20160229
  Receipt Date: 20160229
  Transmission Date: 20160526
  Serious: Yes (Other)
  Sender: FDA-Public Use
  Company Number: None

PATIENT
  Age: 36 Year
  Sex: Female
  Weight: 72.58 kg

DRUGS (1)
  1. ADDERALL [Suspect]
     Active Substance: AMPHETAMINE ASPARTATE\AMPHETAMINE SULFATE\DEXTROAMPHETAMINE SACCHARATE\DEXTROAMPHETAMINE SULFATE
     Indication: ATTENTION DEFICIT/HYPERACTIVITY DISORDER
     Dosage: 1 TABLET TWICE DAILY TAKEN BY MOUTH
     Route: 048
     Dates: start: 20160101, end: 20160225

REACTIONS (9)
  - Product substitution issue [None]
  - Mood swings [None]
  - Gastrointestinal disorder [None]
  - Hypersensitivity [None]
  - Anaphylactic shock [None]
  - Abnormal behaviour [None]
  - Disturbance in attention [None]
  - Fatigue [None]
  - Immune system disorder [None]

NARRATIVE: CASE EVENT DATE: 20160201
